FAERS Safety Report 9931247 (Version 1)
Quarter: 2014Q1

REPORT INFORMATION
  Report Type: Spontaneous
  Country: IT (occurrence: IT)
  Receive Date: 20140228
  Receipt Date: 20140228
  Transmission Date: 20141002
  Serious: Yes (Other)
  Sender: FDA-Public Use
  Company Number: IT-009507513-1402ITA011978

PATIENT
  Age: 68 Year
  Sex: Male
  Weight: 88 kg

DRUGS (3)
  1. RIBAVIRIN [Suspect]
     Dosage: 400 MG, QD
     Dates: start: 20131101, end: 20140202
  2. PEGINTERFERON ALFA-2A [Suspect]
     Indication: HEPATITIS C
     Dosage: UNK, QW
     Dates: start: 20131101, end: 20140202
  3. TELAPREVIR [Suspect]
     Dosage: UNK, QD
     Dates: start: 20131104, end: 20140130

REACTIONS (3)
  - Drug reaction with eosinophilia and systemic symptoms [Recovering/Resolving]
  - Creatinine renal clearance increased [Recovering/Resolving]
  - Rash [Recovering/Resolving]
